FAERS Safety Report 18436763 (Version 3)
Quarter: 2021Q3

REPORT INFORMATION
  Report Type: Report from Study
  Country: CZ (occurrence: CZ)
  Receive Date: 20201028
  Receipt Date: 20210923
  Transmission Date: 20211014
  Serious: Yes (Other)
  Sender: FDA-Public Use
  Company Number: CZ-LUNDBECK-DKLU3022722

PATIENT
  Age: 56 Year
  Sex: Female
  Weight: 67 kg

DRUGS (5)
  1. EPTINEZUMAB. [Suspect]
     Active Substance: EPTINEZUMAB
     Indication: MIGRAINE
     Route: 042
     Dates: start: 20201014, end: 20201014
  2. IMIGRAN [Concomitant]
     Active Substance: SUMATRIPTAN SUCCINATE
     Indication: MIGRAINE
     Dosage: PRN
     Route: 058
     Dates: start: 2014
  3. INDOMETACIN [Concomitant]
     Active Substance: INDOMETHACIN
     Indication: HEADACHE
     Dosage: PRN
     Route: 054
     Dates: start: 2018
  4. ROSEMIG [Concomitant]
     Indication: MIGRAINE
     Dosage: PRN
     Route: 055
     Dates: start: 202001
  5. SUMATRIPTAN ACTAVIS [Concomitant]
     Active Substance: SUMATRIPTAN
     Indication: MIGRAINE
     Dosage: PRN
     Route: 048
     Dates: start: 2003

REACTIONS (1)
  - Anaphylactic reaction [Recovered/Resolved]

NARRATIVE: CASE EVENT DATE: 20201014
